FAERS Safety Report 4645201-2 (Version None)
Quarter: 2005Q2

REPORT INFORMATION
  Report Type: 
  Country: None (occurrence: None)
  Receive Date: 20050426
  Receipt Date: 20050417
  Transmission Date: 20051028
  Serious: Yes (Death, Hospitalization)
  Sender: FDA-Public Use
  Company Number: AP0509

PATIENT
  Sex: Female

DRUGS (1)
  1. LOTRONEX [Suspect]

REACTIONS (2)
  - DEATH [None]
  - NEOPLASM MALIGNANT [None]
